FAERS Safety Report 12258054 (Version 2)
Quarter: 2016Q3

REPORT INFORMATION
  Report Type: Report from Study
  Country: CA (occurrence: CA)
  Receive Date: 20160412
  Receipt Date: 20160701
  Transmission Date: 20161109
  Serious: Yes (Hospitalization, Other)
  Sender: FDA-Public Use
  Company Number: CA-REGENERON PHARMACEUTICALS, INC.-2016-15290

PATIENT

DRUGS (1)
  1. EYLEA [Suspect]
     Active Substance: AFLIBERCEPT
     Indication: NEOVASCULAR AGE-RELATED MACULAR DEGENERATION
     Dosage: TOTAL OF INJECTIONS UNSPECIFIED
     Route: 031

REACTIONS (6)
  - Hospitalisation [Unknown]
  - Blindness unilateral [Unknown]
  - Anxiety disorder [Unknown]
  - Visual acuity reduced [Unknown]
  - Drug ineffective [Recovered/Resolved]
  - Drug administration error [Unknown]
